FAERS Safety Report 4780785-5 (Version None)
Quarter: 2005Q3

REPORT INFORMATION
  Report Type: 
  Country: None (occurrence: None)
  Receive Date: 20050927
  Receipt Date: 20050118
  Transmission Date: 20060218
  Serious: Yes (Hospitalization)
  Sender: FDA-Public Use
  Company Number: US-MERCK-0501USA02969

PATIENT
  Age: 32 Year
  Sex: Male
  Weight: 82 kg

DRUGS (16)
  1. VIOXX [Suspect]
     Indication: BACK PAIN
     Route: 048
     Dates: start: 20001124, end: 20011204
  2. CANTIL [Concomitant]
     Indication: COLITIS
     Route: 065
  3. BIAXIN [Concomitant]
     Route: 065
  4. FLEXERIL [Concomitant]
     Route: 065
  5. BUSPAR [Concomitant]
     Indication: ANXIETY
     Route: 065
  6. ELAVIL [Concomitant]
     Indication: ANXIETY DISORDER
     Route: 065
  7. ROBAXIN [Concomitant]
     Indication: BACK PAIN
     Route: 065
  8. MOTRIN [Concomitant]
     Route: 065
  9. VICODIN [Concomitant]
     Indication: BACK PAIN
     Route: 065
  10. VIAGRA [Concomitant]
     Route: 065
  11. TALWIN [Concomitant]
     Route: 065
  12. IBUPROFEN [Concomitant]
     Route: 065
  13. PERCOCET [Concomitant]
     Indication: BACK PAIN
     Route: 065
  14. ADVIL [Concomitant]
     Indication: HEADACHE
     Route: 065
  15. TYLENOL (CAPLET) [Concomitant]
     Indication: HEADACHE
     Route: 065
  16. ZYPREXA [Concomitant]
     Route: 065

REACTIONS (62)
  - ABDOMINAL PAIN [None]
  - ABDOMINAL PAIN UPPER [None]
  - ADRENAL DISORDER [None]
  - ADRENAL INSUFFICIENCY [None]
  - ANOREXIA [None]
  - ANXIETY [None]
  - ANXIETY DISORDER [None]
  - APPETITE DISORDER [None]
  - ATELECTASIS [None]
  - BACK INJURY [None]
  - BACK PAIN [None]
  - BLOOD CHLORIDE INCREASED [None]
  - BLOOD FOLLICLE STIMULATING HORMONE DECREASED [None]
  - BLOOD LUTEINISING HORMONE DECREASED [None]
  - BLOOD PROLACTIN INCREASED [None]
  - BLOOD TESTOSTERONE DECREASED [None]
  - BLOOD URIC ACID DECREASED [None]
  - COLITIS ULCERATIVE [None]
  - DEPRESSION [None]
  - DIVERTICULUM [None]
  - DIZZINESS [None]
  - DIZZINESS POSTURAL [None]
  - DYSURIA [None]
  - EMPHYSEMA [None]
  - ERECTILE DYSFUNCTION [None]
  - FATIGUE [None]
  - FLANK PAIN [None]
  - FOOD CRAVING [None]
  - GAIT DISTURBANCE [None]
  - HAEMATOCHEZIA [None]
  - HAEMATOCRIT DECREASED [None]
  - HAEMATURIA [None]
  - HIGH DENSITY LIPOPROTEIN DECREASED [None]
  - HOT FLUSH [None]
  - HYPOGONADISM [None]
  - HYPONATRAEMIA [None]
  - INAPPROPRIATE ANTIDIURETIC HORMONE SECRETION [None]
  - INJURY [None]
  - LIBIDO DECREASED [None]
  - LYMPHOCYTE PERCENTAGE DECREASED [None]
  - MUSCULOSKELETAL PAIN [None]
  - MYALGIA [None]
  - NAUSEA [None]
  - NEPHROLITHIASIS [None]
  - NEUTROPHIL PERCENTAGE INCREASED [None]
  - NIGHT SWEATS [None]
  - ORAL INTAKE REDUCED [None]
  - PAIN [None]
  - POST-TRAUMATIC STRESS DISORDER [None]
  - PULMONARY EMBOLISM [None]
  - SECONDARY ADRENOCORTICAL INSUFFICIENCY [None]
  - SENSATION OF PRESSURE [None]
  - SEXUAL DYSFUNCTION [None]
  - STRESS [None]
  - SURGERY [None]
  - THROMBOSIS [None]
  - URETERAL SPASM [None]
  - VISION BLURRED [None]
  - VOMITING [None]
  - WEIGHT DECREASED [None]
  - WEIGHT INCREASED [None]
  - WHITE BLOOD CELL COUNT INCREASED [None]
